FAERS Safety Report 17773570 (Version 1)
Quarter: 2020Q2

REPORT INFORMATION
  Report Type: Spontaneous
  Country: US (occurrence: US)
  Receive Date: 20200512
  Receipt Date: 20200512
  Transmission Date: 20200714
  Serious: No
  Sender: FDA-Public Use
  Company Number: US-ASTRAZENECA-2020SE44065

PATIENT
  Sex: Male

DRUGS (2)
  1. BYDUREON BCISE [Suspect]
     Active Substance: EXENATIDE
     Indication: WEIGHT DECREASED
     Route: 065
  2. BYDUREON BCISE [Suspect]
     Active Substance: EXENATIDE
     Indication: BLOOD GLUCOSE ABNORMAL
     Route: 065

REACTIONS (5)
  - Injection site haemorrhage [Unknown]
  - Off label use [Not Recovered/Not Resolved]
  - Device malfunction [Unknown]
  - Wrong technique in device usage process [Not Recovered/Not Resolved]
  - Product dose omission [Not Recovered/Not Resolved]
